FAERS Safety Report 8818119 (Version 1)
Quarter: 2012Q4

REPORT INFORMATION
  Report Type: 
  Country: SE (occurrence: SE)
  Receive Date: 20121001
  Receipt Date: 20121001
  Transmission Date: 20130627
  Serious: Yes (Death, Other)
  Sender: FDA-Public Use
  Company Number: SE-ROXANE LABORATORIES, INC.-2012-EU-04384GD

PATIENT
  Age: 65 Year
  Sex: Female

DRUGS (13)
  1. PREDNISONE [Suspect]
     Indication: POLYMYOSITIS
     Dosage: 40 mg
  2. PREDNISONE [Suspect]
     Dosage: 10 mg
  3. PREDNISONE [Suspect]
     Dosage: 2.5 mg
  4. PREDNISONE [Suspect]
     Dosage: 17.5 mg
     Route: 048
  5. PREDNISONE [Suspect]
     Dosage: 60 mg
     Route: 042
  6. PREDNISONE [Suspect]
     Dosage: 12.5 mg
  7. CYCLOPHOSPHAMIDE [Suspect]
     Indication: POLYMYOSITIS
     Dosage: 100 mg
     Route: 048
  8. METHOTREXATE [Suspect]
     Indication: POLYMYOSITIS
     Dosage: 2.8571 mg
  9. AZATHIOPRINE [Suspect]
     Indication: POLYMYOSITIS
     Dosage: 150 mg
  10. GLUCOCORT [Suspect]
     Indication: POLYMYOSITIS
     Route: 014
  11. METHYLPREDNISOLONE [Suspect]
     Indication: POLYMYOSITIS
     Dosage: 1000 mg
     Route: 042
  12. LOW MOLECULAR WEIGHT HEPARIN [Suspect]
     Indication: POLYMYOSITIS
     Route: 058
  13. THYROID PREPARATIONS [Concomitant]
     Indication: HYPOTHYROIDISM

REACTIONS (14)
  - Progressive multifocal leukoencephalopathy [Fatal]
  - Quadriparesis [Fatal]
  - Dysphagia [Unknown]
  - Myositis [Unknown]
  - Arthritis [Unknown]
  - Fatigue [Unknown]
  - Vertigo [Unknown]
  - Balance disorder [Unknown]
  - Nystagmus [Unknown]
  - Dysarthria [Unknown]
  - Ataxia [Unknown]
  - Hemiparesis [Unknown]
  - Nausea [Unknown]
  - Hepatic enzyme increased [Unknown]
